FAERS Safety Report 17806977 (Version 1)
Quarter: 2020Q2

REPORT INFORMATION
  Report Type: Report from Study
  Country: US (occurrence: US)
  Receive Date: 20200520
  Receipt Date: 20200520
  Transmission Date: 20200714
  Serious: Yes (Death)
  Sender: FDA-Public Use
  Company Number: US-TAIHO ONCOLOGY  INC-EU-2020-01700

PATIENT
  Sex: Male
  Weight: 97.61 kg

DRUGS (6)
  1. LONSURF [Suspect]
     Active Substance: TIPIRACIL HYDROCHLORIDE\TRIFLURIDINE
     Indication: PRODUCT USED FOR UNKNOWN INDICATION
     Dosage: CYCLE UNKNOWN
     Route: 048
  2. PROCHLORPERAZINE MALEA [Concomitant]
  3. STIVARGA [Concomitant]
     Active Substance: REGORAFENIB
  4. DULOXETINE. [Concomitant]
     Active Substance: DULOXETINE
  5. METHYLPHENIDATE. [Concomitant]
     Active Substance: METHYLPHENIDATE
  6. OLANZAPINE. [Concomitant]
     Active Substance: OLANZAPINE

REACTIONS (1)
  - Death [Fatal]
